FAERS Safety Report 4301902-7 (Version None)
Quarter: 2004Q1

REPORT INFORMATION
  Report Type: 
  Country: None (occurrence: None)
  Receive Date: 20040219
  Receipt Date: 20040206
  Transmission Date: 20041129
  Serious: Yes (Other)
  Sender: FDA-Public Use
  Company Number: US-JNJFOC-20040201971

PATIENT
  Age: 38 Year
  Sex: Male

DRUGS (2)
  1. INFLIXIMAB (INFLIXIMAB, RECOMBINANT) LYOPHILIZED POWDER [Suspect]
     Indication: ARTHRALGIA
     Dosage: RECEIVED APPROXIMATELY FOUR INFUSION
  2. INFLIXIMAB (INFLIXIMAB, RECOMBINANT) LYOPHILIZED POWDER [Suspect]
     Indication: MIXED CONNECTIVE TISSUE DISEASE
     Dosage: RECEIVED APPROXIMATELY FOUR INFUSION

REACTIONS (10)
  - ARTHRALGIA [None]
  - CHILLS [None]
  - DNA ANTIBODY POSITIVE [None]
  - FLANK PAIN [None]
  - HEPATIC ENZYME INCREASED [None]
  - HYPOCOMPLEMENTAEMIA [None]
  - LUPUS-LIKE SYNDROME [None]
  - MYALGIA [None]
  - NAUSEA [None]
  - VOMITING [None]
